FAERS Safety Report 13239307 (Version 2)
Quarter: 2017Q2

REPORT INFORMATION
  Report Type: Spontaneous
  Country: US (occurrence: US)
  Receive Date: 20170216
  Receipt Date: 20170622
  Transmission Date: 20170912
  Serious: Yes (Death)
  Sender: FDA-Public Use
  Company Number: US-MERRIMACK PHARMACEUTICALS, INC.-MER-2016-000139

PATIENT

DRUGS (14)
  1. ONIVYDE [Suspect]
     Active Substance: IRINOTECAN HYDROCHLORIDE
     Indication: PANCREATIC CARCINOMA
     Dosage: UNK
     Route: 042
     Dates: start: 20151001, end: 20151001
  2. ONIVYDE [Suspect]
     Active Substance: IRINOTECAN HYDROCHLORIDE
     Dosage: 70 MG/M2 OVER 90 MIN ADMIN
     Route: 042
     Dates: start: 20151123
  3. ONIVYDE [Suspect]
     Active Substance: IRINOTECAN HYDROCHLORIDE
     Dosage: 135 MG/M2, ONE TIME DOSE
     Route: 042
     Dates: start: 20151214, end: 20151214
  4. COUMADIN [Concomitant]
     Active Substance: WARFARIN SODIUM
     Indication: PRODUCT USED FOR UNKNOWN INDICATION
     Dosage: UNK, ONE TIME DOSE
     Dates: start: 20151125, end: 20151125
  5. 5-FU                               /00098801/ [Concomitant]
     Active Substance: FLUOROURACIL
     Indication: PRODUCT USED FOR UNKNOWN INDICATION
     Dosage: 2400 MG/M2 OVER 46 HRS, Q2WK X12 CYCLES
     Route: 042
     Dates: start: 20151123, end: 20160119
  6. ONIVYDE [Suspect]
     Active Substance: IRINOTECAN HYDROCHLORIDE
     Dosage: 135 MG/M2, ONE TIME DOSE
     Route: 042
     Dates: start: 20151221, end: 20151221
  7. LEUCOVORIN                         /00566701/ [Concomitant]
     Active Substance: LEUCOVORIN
     Indication: PRODUCT USED FOR UNKNOWN INDICATION
     Dosage: 400 MG/M2, OVER 30 MIN D1
     Route: 042
     Dates: start: 20151123, end: 20160119
  8. GEMZAR [Concomitant]
     Active Substance: GEMCITABINE HYDROCHLORIDE
     Indication: PRODUCT USED FOR UNKNOWN INDICATION
     Dosage: 800 MG/M2, Q2WK
     Dates: start: 20151022, end: 20151119
  9. ONIVYDE [Suspect]
     Active Substance: IRINOTECAN HYDROCHLORIDE
     Dosage: 137 MG/M2, ONE TIME DOSE
     Route: 042
     Dates: start: 20151123, end: 20151123
  10. NEULASTA [Concomitant]
     Dosage: UNK
     Dates: start: 20151022, end: 20151119
  11. ABRAXANE [Concomitant]
     Active Substance: PACLITAXEL
     Indication: PRODUCT USED FOR UNKNOWN INDICATION
     Dosage: 100 MG/M2, Q2WK
     Dates: start: 20151022, end: 20151119
  12. ONIVYDE [Suspect]
     Active Substance: IRINOTECAN HYDROCHLORIDE
     Dosage: 129 MG/M2, ONE TIME DOSE
     Route: 042
     Dates: start: 20151207, end: 20151207
  13. ONIVYDE [Suspect]
     Active Substance: IRINOTECAN HYDROCHLORIDE
     Dosage: UNK
     Dates: start: 20160104, end: 20160104
  14. NEULASTA [Concomitant]
     Indication: PRODUCT USED FOR UNKNOWN INDICATION
     Dosage: 6 MG, UNK
     Dates: start: 20151009, end: 20151009

REACTIONS (3)
  - Disease progression [Fatal]
  - Pancreatic carcinoma stage IV [None]
  - Malignant neoplasm progression [None]
